FAERS Safety Report 5832652-3 (Version None)
Quarter: 2008Q3

REPORT INFORMATION
  Report Type: 
  Country: None (occurrence: None)
  Receive Date: 20080804
  Receipt Date: 20080728
  Transmission Date: 20090109
  Serious: Yes (Other)
  Sender: FDA-Public Use
  Company Number: PHBS2008US05226

PATIENT
  Age: 51 Year
  Sex: Female

DRUGS (6)
  1. OXCARBAZEPINE [Suspect]
     Indication: MANIA
     Dosage: 600 MG, BID
  2. OXCARBAZEPINE [Interacting]
     Dosage: 300 MG, BID
  3. VALPROATE SODIUM [Interacting]
     Dosage: 1500 MG, BID
  4. VALPROATE SODIUM [Interacting]
     Dosage: 1000 MG, BID
  5. CLONAZEPAM [Concomitant]
     Dosage: 1 MG, TID
  6. GLUCOPHAGE [Concomitant]
     Dosage: 500 MG, BID

REACTIONS (13)
  - ATAXIA [None]
  - CATATONIA [None]
  - CONFUSIONAL STATE [None]
  - DECREASED ACTIVITY [None]
  - DRUG INTERACTION [None]
  - DRUG LEVEL INCREASED [None]
  - IMPAIRED SELF-CARE [None]
  - INCONTINENCE [None]
  - OEDEMA PERIPHERAL [None]
  - PLATELET COUNT DECREASED [None]
  - SPEECH DISORDER [None]
  - THERAPEUTIC AGENT TOXICITY [None]
  - THOUGHT BLOCKING [None]
